FAERS Safety Report 17859109 (Version 1)
Quarter: 2020Q2

REPORT INFORMATION
  Report Type: Spontaneous
  Country: US (occurrence: US)
  Receive Date: 20200604
  Receipt Date: 20200604
  Transmission Date: 20200714
  Serious: No
  Sender: FDA-Public Use
  Company Number: US-DRREDDYS-USA/USA/20/0123327

PATIENT
  Age: 37 Year
  Sex: Female
  Weight: 72 kg

DRUGS (4)
  1. ZENATANE [Suspect]
     Active Substance: ISOTRETINOIN
     Route: 048
     Dates: end: 201912
  2. ZENATANE [Suspect]
     Active Substance: ISOTRETINOIN
     Route: 048
     Dates: start: 20190915, end: 201911
  3. ZENATANE [Suspect]
     Active Substance: ISOTRETINOIN
     Indication: ACNE
     Route: 048
     Dates: start: 201906, end: 201907
  4. CLARAVIS [Suspect]
     Active Substance: ISOTRETINOIN
     Indication: PRODUCT USED FOR UNKNOWN INDICATION
     Dosage: FILLED ON 16 JULY 2019
     Route: 065

REACTIONS (4)
  - Menstruation irregular [Unknown]
  - Weight increased [Unknown]
  - Alopecia [Unknown]
  - Lip dry [Unknown]
